FAERS Safety Report 12444635 (Version 2)
Quarter: 2016Q2

REPORT INFORMATION
  Report Type: Spontaneous
  Country: FR (occurrence: FR)
  Receive Date: 20160607
  Receipt Date: 20160616
  Transmission Date: 20160815
  Serious: Yes (Hospitalization, Other)
  Sender: FDA-Public Use
  Company Number: FR-JNJFOC-20160601541

PATIENT
  Age: 56 Year
  Sex: Male

DRUGS (2)
  1. ROCEPHINE [Concomitant]
     Active Substance: CEFTRIAXONE SODIUM
     Indication: EAR INFECTION
     Dosage: FOR INFECTIOUS OTITIS??8 DAYS OF TREATMENT
     Route: 065
     Dates: start: 20160318, end: 20160325
  2. IMBRUVICA [Suspect]
     Active Substance: IBRUTINIB
     Indication: CHRONIC LYMPHOCYTIC LEUKAEMIA
     Route: 048
     Dates: start: 20150814, end: 20160401

REACTIONS (2)
  - Deafness [Unknown]
  - Ear haemorrhage [Recovered/Resolved]

NARRATIVE: CASE EVENT DATE: 20160325
